FAERS Safety Report 5352455-6 (Version None)
Quarter: 2007Q2

REPORT INFORMATION
  Report Type: 
  Country: None (occurrence: None)
  Receive Date: 20070611
  Receipt Date: 20070607
  Transmission Date: 20071010
  Serious: Yes (Other)
  Sender: FDA-Public Use
  Company Number: A0654718A

PATIENT
  Age: 74 Year
  Sex: Female

DRUGS (11)
  1. AVANDIA [Suspect]
     Indication: DRUG USE FOR UNKNOWN INDICATION
     Dosage: 4MG PER DAY
     Route: 048
  2. ADALAT [Concomitant]
  3. ALLOPURINOL [Concomitant]
  4. ASPIRIN [Concomitant]
  5. DIABETA [Concomitant]
  6. DIOVAN [Concomitant]
  7. EZETROL [Concomitant]
  8. GLUCOPHAGE [Concomitant]
  9. NOVO-HYDRAZIDE [Concomitant]
  10. SIMVASTATIN [Concomitant]
  11. SYNTHROID [Concomitant]

REACTIONS (1)
  - MACULAR OEDEMA [None]
